FAERS Safety Report 5161149-1 (Version None)
Quarter: 2006Q4

REPORT INFORMATION
  Report Type: 
  Country: None (occurrence: None)
  Receive Date: 20061130
  Receipt Date: 20061120
  Transmission Date: 20070319
  Serious: Yes (Other)
  Sender: FDA-Public Use
  Company Number: BR-ELI_LILLY_AND_COMPANY-BR200611004673

PATIENT
  Age: 17 Year
  Sex: Female
  Weight: 34 kg

DRUGS (1)
  1. OLANZAPINE [Suspect]
     Indication: ANOREXIA NERVOSA
     Dosage: 5 MG, DAILY (1/D)
     Route: 048
     Dates: start: 20060801, end: 20061001

REACTIONS (3)
  - GENERALISED OEDEMA [None]
  - HEPATITIS [None]
  - JAUNDICE [None]
